FAERS Safety Report 9752145 (Version 1)
Quarter: 2013Q4

REPORT INFORMATION
  Report Type: Spontaneous
  Country: US (occurrence: None)
  Receive Date: 20131212
  Receipt Date: 20131212
  Transmission Date: 20140711
  Serious: Yes (Disabling)
  Sender: FDA-Public Use
  Company Number: None

PATIENT
  Age: 46 Year
  Sex: Female
  Weight: 104.78 kg

DRUGS (2)
  1. DEXILANT [Suspect]
     Indication: GASTROOESOPHAGEAL REFLUX DISEASE
     Dosage: 1 PILL, ONCE DAILY, TAKEN BY MOUTH
  2. INVANZ [Suspect]
     Indication: APPENDICECTOMY
     Dosage: PREMEDICATION, INTO A VEIN
     Dates: start: 20131122

REACTIONS (9)
  - Chills [None]
  - Pyrexia [None]
  - Hyperhidrosis [None]
  - Nausea [None]
  - Diarrhoea [None]
  - Asthenia [None]
  - Vomiting [None]
  - Dehydration [None]
  - Clostridial infection [None]
